FAERS Safety Report 4302146-5 (Version None)
Quarter: 2004Q1

REPORT INFORMATION
  Report Type: 
  Country: None (occurrence: None)
  Receive Date: 20040220
  Receipt Date: 20040205
  Transmission Date: 20041129
  Serious: Yes (Disabling)
  Sender: FDA-Public Use
  Company Number: K200400151

PATIENT
  Age: 39 Year
  Sex: Male

DRUGS (3)
  1. ALTACE [Suspect]
     Indication: PROPHYLAXIS
     Dosage: 10 MG, QD, ORAL
     Route: 048
     Dates: start: 20031229
  2. ACETYLSALICYLIC ACID (ACETYLSALICYLIC ACIDZ) [Concomitant]
  3. APO-METFORMIN (METFORMIN HYDROCHLORIDE) [Concomitant]

REACTIONS (4)
  - BONE PAIN [None]
  - HYPOAESTHESIA [None]
  - PAIN [None]
  - SENSORY LOSS [None]
